FAERS Safety Report 26071516 (Version 2)
Quarter: 2025Q4

REPORT INFORMATION
  Report Type: Spontaneous
  Country: US (occurrence: US)
  Receive Date: 20251120
  Receipt Date: 20251222
  Transmission Date: 20260118
  Serious: Yes (Death)
  Sender: LEXICON PHARMACEUTICALS
  Company Number: US-LEX-000829

PATIENT
  Age: 93 Year
  Sex: Female
  Weight: 38.102 kg

DRUGS (1)
  1. INPEFA [Suspect]
     Active Substance: SOTAGLIFLOZIN
     Indication: Cardiac failure chronic
     Route: 048
     Dates: start: 20241210

REACTIONS (1)
  - Death [Fatal]

NARRATIVE: CASE EVENT DATE: 20251025
